FAERS Safety Report 6554962-7 (Version None)
Quarter: 2010Q1

REPORT INFORMATION
  Report Type: 
  Country: None (occurrence: None)
  Receive Date: 20100126
  Receipt Date: 20100126
  Transmission Date: 20100710
  Serious: No
  Sender: FDA-Public Use
  Company Number: None

PATIENT
  Age: 80 Year
  Sex: Male
  Weight: 83.9154 kg

DRUGS (4)
  1. LIPITOR [Suspect]
     Indication: DYSLIPIDAEMIA
     Dosage: 20MG EVERY EVENING PO
     Route: 048
     Dates: start: 20091101, end: 20100110
  2. LUPRON DEPOT [Concomitant]
  3. FOSMAX [Concomitant]
  4. ASPIRIN [Concomitant]

REACTIONS (2)
  - SEDATION [None]
  - SOMNOLENCE [None]
